FAERS Safety Report 7586991-9 (Version None)
Quarter: 2011Q3

REPORT INFORMATION
  Report Type: 
  Country: None (occurrence: None)
  Receive Date: 20110701
  Receipt Date: 20110411
  Transmission Date: 20111222
  Serious: Yes (Other)
  Sender: FDA-Public Use
  Company Number: BR-B.I. PHARMACEUTICALS,INC./RIDGEFIELD-2011-BR-00439BR

PATIENT
  Sex: Female

DRUGS (1)
  1. MICARDIS [Suspect]
     Dosage: NR

REACTIONS (3)
  - HYPERTENSIVE CRISIS [None]
  - NECK PAIN [None]
  - HEADACHE [None]
